FAERS Safety Report 16415015 (Version 1)
Quarter: 2019Q2

REPORT INFORMATION
  Report Type: Spontaneous
  Country: US (occurrence: US)
  Receive Date: 20190611
  Receipt Date: 20190611
  Transmission Date: 20190711
  Serious: No
  Sender: FDA-Public Use
  Company Number: US-SEPTODONT-201804861

PATIENT
  Age: 35 Year
  Sex: Male

DRUGS (1)
  1. ARTICAINE 200 (ARTICAINE HYDROCHLORIDE\EPINEPHRINE BITARTRATE) [Suspect]
     Active Substance: ARTICAINE HYDROCHLORIDE\EPINEPHRINE BITARTRATE
     Indication: DENTAL LOCAL ANAESTHESIA
     Dosage: REQUIRED 2 FULL CARPULES ON UPPER #3
     Route: 004
     Dates: start: 20181017, end: 20181017

REACTIONS (1)
  - Drug ineffective [Unknown]

NARRATIVE: CASE EVENT DATE: 20181017
